FAERS Safety Report 7734775-0 (Version None)
Quarter: 2011Q3

REPORT INFORMATION
  Report Type: 
  Country: None (occurrence: None)
  Receive Date: 20110907
  Receipt Date: 20110902
  Transmission Date: 20111222
  Serious: Yes (Hospitalization)
  Sender: FDA-Public Use
  Company Number: IT-BRISTOL-MYERS SQUIBB COMPANY-15974439

PATIENT
  Age: 64 Year
  Sex: Female

DRUGS (5)
  1. NORVASC [Concomitant]
  2. TICLID [Concomitant]
     Dosage: TABS
  3. LANSOPRAZOLE [Concomitant]
  4. LASIX [Concomitant]
     Dosage: LASIX 25MG TABS,1DF=0.5 (UNITS NOT SPECIFIED).
     Route: 048
  5. MEGACE [Suspect]
     Indication: ENDOMETRIAL CANCER
     Dosage: 1DF=1 UNIT,INTERRUPTED:9AUG2011.
     Route: 048
     Dates: start: 20101223

REACTIONS (1)
  - HYPERTENSIVE CRISIS [None]
